FAERS Safety Report 8053144-X (Version None)
Quarter: 2012Q1

REPORT INFORMATION
  Report Type: 
  Country: None (occurrence: None)
  Receive Date: 20120118
  Receipt Date: 20120109
  Transmission Date: 20120608
  Serious: Yes (Hospitalization, Other)
  Sender: FDA-Public Use
  Company Number: DE-UCBSA-045649

PATIENT
  Age: 16 Year
  Sex: Female

DRUGS (3)
  1. VALPROATE SODIUM [Suspect]
  2. LEVETIRACETAM [Suspect]
  3. CARBAMAZEPINE [Suspect]

REACTIONS (5)
  - VOMITING [None]
  - SOMNOLENCE [None]
  - SOPOR [None]
  - SUICIDE ATTEMPT [None]
  - HYPOTENSION [None]
